FAERS Safety Report 10231812 (Version 1)
Quarter: 2014Q2

REPORT INFORMATION
  Report Type: Other
  Country: US (occurrence: US)
  Receive Date: 20140612
  Receipt Date: 20140612
  Transmission Date: 20141212
  Serious: Yes (Other)
  Sender: FDA-Public Use
  Company Number: US-LUPIN PHARMACEUTICALS INC.-2014-01131

PATIENT
  Age: 18 Year
  Sex: Female

DRUGS (2)
  1. MINOCYCLINE [Suspect]
     Indication: ACNE
     Route: 065
  2. RANITIDINE [Concomitant]
     Indication: PRODUCT USED FOR UNKNOWN INDICATION
     Route: 065

REACTIONS (1)
  - Polyarteritis nodosa [Recovered/Resolved]
